FAERS Safety Report 15419483 (Version 4)
Quarter: 2018Q4

REPORT INFORMATION
  Report Type: Report from Study
  Country: US (occurrence: US)
  Receive Date: 20180924
  Receipt Date: 20181205
  Transmission Date: 20190204
  Serious: Yes (Death, Hospitalization)
  Sender: FDA-Public Use
  Company Number: US-EISAI MEDICAL RESEARCH-EC-2018-039796

PATIENT
  Age: 75 Year
  Sex: Male
  Weight: 89.81 kg

DRUGS (15)
  1. TRAMADOL. [Concomitant]
     Active Substance: TRAMADOL
  2. MAGNESIUM [Concomitant]
     Active Substance: MAGNESIUM
  3. LENVIMA [Suspect]
     Active Substance: LENVATINIB
     Route: 048
     Dates: start: 201809, end: 20180927
  4. CALCITROL [Concomitant]
     Active Substance: CALCITRIOL
  5. LASIX [Concomitant]
     Active Substance: FUROSEMIDE
  6. LEVOTHYROXINE. [Concomitant]
     Active Substance: LEVOTHYROXINE
  7. CALCIUM [Concomitant]
     Active Substance: CALCIUM
  8. METOPROLOL. [Concomitant]
     Active Substance: METOPROLOL
  9. AFINITOR [Concomitant]
     Active Substance: EVEROLIMUS
  10. SIMVASTATIN. [Concomitant]
     Active Substance: SIMVASTATIN
  11. LENVIMA [Suspect]
     Active Substance: LENVATINIB
     Indication: RENAL CANCER
     Route: 048
     Dates: start: 201804, end: 201809
  12. ENALAPRIL [Concomitant]
     Active Substance: ENALAPRIL
  13. OMEPRAZOLE. [Concomitant]
     Active Substance: OMEPRAZOLE
  14. ASPIRIN. [Concomitant]
     Active Substance: ASPIRIN
  15. GLIPIZIDE. [Concomitant]
     Active Substance: GLIPIZIDE

REACTIONS (8)
  - Peripheral swelling [Unknown]
  - Proteinuria [Recovering/Resolving]
  - Respiratory failure [Fatal]
  - Blood creatinine increased [Recovering/Resolving]
  - Oedema [Recovering/Resolving]
  - Cough [Not Recovered/Not Resolved]
  - Malaise [Unknown]
  - Hypertension [Recovering/Resolving]

NARRATIVE: CASE EVENT DATE: 2018
